FAERS Safety Report 25917118 (Version 1)
Quarter: 2025Q4

REPORT INFORMATION
  Report Type: Report from Study
  Country: ZA (occurrence: ZA)
  Receive Date: 20251014
  Receipt Date: 20251014
  Transmission Date: 20260118
  Serious: Yes (Other)
  Sender: ROCHE
  Company Number: ZA-ROCHE-10000401398

PATIENT
  Sex: Female

DRUGS (1)
  1. OCREVUS [Suspect]
     Active Substance: OCRELIZUMAB
     Indication: Primary progressive multiple sclerosis
     Dosage: THEREAFTER 300MG EVERY AFTER 6 MONTHS
     Route: 042

REACTIONS (1)
  - Demyelination [Unknown]
